FAERS Safety Report 4477830-3 (Version None)
Quarter: 2004Q4

REPORT INFORMATION
  Report Type: 
  Country: None (occurrence: None)
  Receive Date: 20041018
  Receipt Date: 20041011
  Transmission Date: 20050328
  Serious: Yes (Hospitalization)
  Sender: FDA-Public Use
  Company Number: AU-MERCK-0410AUS00172

PATIENT
  Age: 58 Year

DRUGS (1)
  1. VIOXX [Suspect]
     Route: 048
     Dates: start: 20010101

REACTIONS (4)
  - DYSPNOEA [None]
  - JOINT SWELLING [None]
  - PAIN IN EXTREMITY [None]
  - PERIPHERAL EMBOLISM [None]
